FAERS Safety Report 8545179-5 (Version None)
Quarter: 2012Q3

REPORT INFORMATION
  Report Type: 
  Country: None (occurrence: None)
  Receive Date: 20120727
  Receipt Date: 20120725
  Transmission Date: 20120928
  Serious: Yes (Death)
  Sender: FDA-Public Use
  Company Number: DE-ROCHE-1093483

PATIENT
  Sex: Male

DRUGS (6)
  1. METHOTREXATE [Concomitant]
     Indication: POLYARTHRITIS
     Route: 051
     Dates: start: 20031101, end: 20080901
  2. ACTEMRA [Suspect]
     Indication: POLYARTHRITIS
     Dates: start: 20090301, end: 20090601
  3. GOLIMUMAB [Concomitant]
     Indication: POLYARTHRITIS
     Dates: start: 20110301, end: 20110801
  4. SULFASALAZINE [Concomitant]
     Dates: start: 20090701, end: 20110301
  5. METHOTREXATE [Concomitant]
     Route: 051
     Dates: start: 20090501
  6. CIMZIA [Concomitant]
     Indication: POLYARTHRITIS
     Dates: start: 20010901

REACTIONS (1)
  - METASTATIC BRONCHIAL CARCINOMA [None]
